FAERS Safety Report 9255162 (Version 1)
Quarter: 2013Q2

REPORT INFORMATION
  Report Type: Spontaneous
  Country: DK (occurrence: GB)
  Receive Date: 20130425
  Receipt Date: 20130425
  Transmission Date: 20140414
  Serious: Yes (Other)
  Sender: FDA-Public Use
  Company Number: GB-FRI-1000044698

PATIENT
  Age: 49 Year
  Sex: Female
  Weight: 73 kg

DRUGS (11)
  1. CITALOPRAM [Suspect]
     Indication: ANXIETY
     Dosage: 20 MG
     Route: 048
     Dates: start: 2008, end: 2013
  2. CITALOPRAM [Suspect]
     Indication: DEPRESSION
     Dosage: 10 MG
     Route: 048
     Dates: start: 2013, end: 2013
  3. CITALOPRAM [Suspect]
     Dosage: 10 MG QOD
     Route: 048
     Dates: start: 2013, end: 20130308
  4. AVAMYS [Concomitant]
  5. CANDESARTAN [Concomitant]
     Dosage: 12 MG
  6. DIAZEPAM [Concomitant]
  7. FISH OIL [Concomitant]
  8. MSM [Concomitant]
  9. STARFLOWER OIL [Concomitant]
  10. TELFAST [Concomitant]
     Dosage: 120 MG
  11. TRAMACET [Concomitant]

REACTIONS (12)
  - Anger [Unknown]
  - Fatigue [Unknown]
  - Alopecia [Unknown]
  - Increased appetite [Unknown]
  - Insomnia [Unknown]
  - Irritability [Unknown]
  - Irritable bowel syndrome [Unknown]
  - Arthralgia [Unknown]
  - Myalgia [Unknown]
  - Muscle tightness [Unknown]
  - Neck pain [Unknown]
  - Withdrawal syndrome [Recovered/Resolved with Sequelae]
